FAERS Safety Report 5287046-9 (Version None)
Quarter: 2007Q1

REPORT INFORMATION
  Report Type: 
  Country: None (occurrence: None)
  Receive Date: 20070330
  Receipt Date: 20070323
  Transmission Date: 20070707
  Serious: Yes (Hospitalization)
  Sender: FDA-Public Use
  Company Number: 235298

PATIENT
  Age: 60 Year
  Sex: Male
  Weight: 102.1 kg

DRUGS (6)
  1. BEVACIZUMAB(BEVACIZUMAB) PWDR + SOLVENT,INFUSION SOLN, 100MG [Suspect]
     Indication: GLIOBLASTOMA MULTIFORME
     Dosage: 1093 Q2W, INTRAVENOUS
     Route: 042
     Dates: start: 20061211, end: 20070221
  2. IRINOTECAN HCL [Suspect]
     Indication: GLIOBLASTOMA MULTIFORME
     Dosage: 290 Q2W, INTRAVENOUS
     Route: 042
     Dates: start: 20061211, end: 20070221
  3. LEVAQUIN [Concomitant]
  4. THIAMINE HYDROCHLORIDE [Concomitant]
  5. DEXAMETHASONE TAB [Concomitant]
  6. HEPARIN [Concomitant]

REACTIONS (7)
  - ABNORMAL BEHAVIOUR [None]
  - DEEP VEIN THROMBOSIS [None]
  - HYDROCEPHALUS [None]
  - NEUTROPHIL COUNT DECREASED [None]
  - PNEUMONIA [None]
  - PULMONARY EMBOLISM [None]
  - URINARY TRACT INFECTION [None]
